FAERS Safety Report 9131863 (Version 1)
Quarter: 2013Q1

REPORT INFORMATION
  Report Type: Spontaneous
  Country: US (occurrence: US)
  Receive Date: 20130301
  Receipt Date: 20130301
  Transmission Date: 20140127
  Serious: Yes (Other)
  Sender: FDA-Public Use
  Company Number: US-ELI_LILLY_AND_COMPANY-US201302007458

PATIENT
  Age: 73 Year
  Sex: Female
  Weight: 122.45 kg

DRUGS (10)
  1. BYDUREON [Suspect]
     Indication: INSULIN-REQUIRING TYPE 2 DIABETES MELLITUS
     Dosage: 2 MG, WEEKLY (1/W)
     Route: 058
     Dates: start: 20130217
  2. LANTUS [Concomitant]
     Indication: INSULIN-REQUIRING TYPE 2 DIABETES MELLITUS
     Dosage: 45 U, EACH EVENING
     Route: 058
  3. HUMALOG [Concomitant]
     Indication: INSULIN-REQUIRING TYPE 2 DIABETES MELLITUS
     Route: 058
  4. DIOVAN [Concomitant]
     Indication: HYPERTENSION
     Dosage: 100 MG, QD
     Route: 048
  5. CALAN [Concomitant]
     Indication: HYPERTENSION
     Dosage: 250 MG, QD
     Route: 048
  6. LEVOTHYROXINE [Concomitant]
     Indication: THYROID DISORDER
     Dosage: 112 UG, QD
     Route: 048
  7. LASIX                                   /USA/ [Concomitant]
     Indication: DIURETIC THERAPY
     Dosage: 40 MG, QD
     Route: 048
  8. LASIX                                   /USA/ [Concomitant]
     Dosage: 80 MG, QD
     Route: 048
  9. ALLOPURINOL [Concomitant]
     Indication: ARTHRITIS
     Dosage: UNK, BID
     Route: 048
  10. FAMOTIDINE [Concomitant]
     Indication: DYSPEPSIA
     Dosage: 20 MG, BID
     Route: 048

REACTIONS (8)
  - Cardiac discomfort [Recovering/Resolving]
  - Extrasystoles [Recovering/Resolving]
  - Neck pain [Recovering/Resolving]
  - Oropharyngeal pain [Recovering/Resolving]
  - Hypophagia [Recovering/Resolving]
  - Decreased appetite [Not Recovered/Not Resolved]
  - Asthenia [Not Recovered/Not Resolved]
  - Off label use [Not Recovered/Not Resolved]
